FAERS Safety Report 21404132 (Version 2)
Quarter: 2022Q4

REPORT INFORMATION
  Report Type: Report from Study
  Country: IE (occurrence: IE)
  Receive Date: 20221003
  Receipt Date: 20221003
  Transmission Date: 20230113
  Serious: Yes (Life-Threatening, Hospitalization)
  Sender: FDA-Public Use
  Company Number: IE-009507513-2206IRL008721

PATIENT
  Age: 74 Year
  Sex: Male
  Weight: 106.4 kg

DRUGS (13)
  1. PEMBROLIZUMAB [Suspect]
     Active Substance: PEMBROLIZUMAB
     Indication: Hormone-refractory prostate cancer
     Dosage: 200 MILLIGRAM, Q3W
     Route: 042
     Dates: start: 20220603, end: 20220603
  2. PEMBROLIZUMAB [Suspect]
     Active Substance: PEMBROLIZUMAB
     Indication: Prostate cancer metastatic
  3. ENZALUTAMIDE [Suspect]
     Active Substance: ENZALUTAMIDE
     Indication: Hormone-refractory prostate cancer
     Dosage: 160 MILLIGRAM, QD
     Route: 048
     Dates: start: 20220603, end: 20220624
  4. ENZALUTAMIDE [Suspect]
     Active Substance: ENZALUTAMIDE
     Indication: Prostate cancer metastatic
  5. ATENOLOL [Concomitant]
     Active Substance: ATENOLOL
     Indication: Hypertension
     Dosage: 100 MILLIGRAM, QD
     Route: 048
     Dates: start: 201401, end: 20220625
  6. LERCANIDIPINE [Concomitant]
     Active Substance: LERCANIDIPINE
     Indication: Hypertension
     Dosage: 20 MILLIGRAM, QD
     Route: 048
     Dates: start: 201401, end: 20220625
  7. LUPRON DEPOT [Concomitant]
     Active Substance: LEUPROLIDE ACETATE
     Indication: Prostate cancer
     Dosage: TOTAL DAILY DOSE: 30 MG, FREQUENCY: OTHER
     Route: 058
     Dates: start: 20210814
  8. IRON [Concomitant]
     Active Substance: IRON
     Indication: Mineral supplementation
     Dosage: TOTAL DAILY DOSE: 305 MILLIGRAM; FREQUENCY: OTHER
     Route: 048
     Dates: start: 20220606, end: 20220625
  9. ACETAMINOPHEN [Concomitant]
     Active Substance: ACETAMINOPHEN
     Indication: Arthralgia
     Dosage: 1 GRAM, QID
     Route: 048
     Dates: start: 20220619, end: 20220625
  10. CODEINE [Concomitant]
     Active Substance: CODEINE
     Indication: Arthralgia
     Dosage: TOTAL DAILY DOSE: 30 MILLIGRAM, PRN
     Route: 048
     Dates: start: 20220620, end: 20220625
  11. PREDNISOLONE [Concomitant]
     Active Substance: PREDNISOLONE
     Indication: Hepatic enzyme increased
     Dosage: 125 MILLIGRAM, QD
     Route: 048
     Dates: start: 20220622, end: 20220625
  12. PANTOPRAZOLE [Concomitant]
     Active Substance: PANTOPRAZOLE
     Indication: Product used for unknown indication
     Dosage: 40 MILLIGRAM, QD
     Route: 048
     Dates: start: 20220622, end: 20220625
  13. SULFAMETHOXAZOLE\TRIMETHOPRIM [Concomitant]
     Active Substance: SULFAMETHOXAZOLE\TRIMETHOPRIM
     Indication: Viral infection
     Dosage: TOTAL DAILY DOSE: 90 MILLIGRAM; FREQUENCY: OTHER
     Route: 048
     Dates: start: 20220622

REACTIONS (4)
  - Myasthenia gravis [Recovering/Resolving]
  - Myositis [Recovering/Resolving]
  - Myocarditis [Recovering/Resolving]
  - Respiratory failure [Recovered/Resolved]

NARRATIVE: CASE EVENT DATE: 20220625
